FAERS Safety Report 6896261-X (Version None)
Quarter: 2010Q3

REPORT INFORMATION
  Report Type: 
  Country: None (occurrence: None)
  Receive Date: 20100802
  Receipt Date: 20100723
  Transmission Date: 20110219
  Serious: Yes (Hospitalization)
  Sender: FDA-Public Use
  Company Number: A0873286A

PATIENT
  Sex: Female

DRUGS (1)
  1. AVANDIA [Suspect]
     Dosage: 8MG TWICE PER DAY
     Route: 048
     Dates: start: 20040101, end: 20060101

REACTIONS (5)
  - CHEST DISCOMFORT [None]
  - FLUID RETENTION [None]
  - HEPATIC CYST [None]
  - LIVER INJURY [None]
  - PALPITATIONS [None]
